FAERS Safety Report 12711515 (Version 2)
Quarter: 2016Q3

REPORT INFORMATION
  Report Type: Spontaneous
  Country: US (occurrence: US)
  Receive Date: 20160902
  Receipt Date: 20160906
  Transmission Date: 20161109
  Serious: Yes (Other)
  Sender: FDA-Public Use
  Company Number: US-PFIZER INC-2016411375

PATIENT
  Age: 76 Year
  Sex: Female
  Weight: 65.77 kg

DRUGS (6)
  1. VICODIN [Concomitant]
     Active Substance: ACETAMINOPHEN\HYDROCODONE BITARTRATE
     Dosage: UNK, 4X/DAY
  2. FLUDROCORTISONE [Concomitant]
     Active Substance: FLUDROCORTISONE
     Dosage: 0.1MG TABLETS ONCE A DAY IN THE MORNING
  3. BABY ASPIRIN [Concomitant]
     Active Substance: ASPIRIN
     Dosage: ONE A DAY
  4. LYRICA [Suspect]
     Active Substance: PREGABALIN
     Indication: PAIN
     Dosage: 100MG CAPSULE BY MOUTH THREE TO FOUR TIMES A DAY
     Route: 048
     Dates: end: 201512
  5. METOPROLOL. [Concomitant]
     Active Substance: METOPROLOL
     Dosage: 25MG, HALF TABLET EVERY DAY
  6. BABY ASPIRIN [Concomitant]
     Active Substance: ASPIRIN
     Dosage: UNK UNK, 2X/DAY

REACTIONS (7)
  - Pharyngeal oedema [Recovered/Resolved]
  - Drug effect incomplete [Unknown]
  - Mouth injury [Recovered/Resolved]
  - Swollen tongue [Recovered/Resolved]
  - Drug hypersensitivity [Unknown]
  - Aneurysm [Unknown]
  - Intentional product misuse [Unknown]

NARRATIVE: CASE EVENT DATE: 2015
